FAERS Safety Report 15778903 (Version 2)
Quarter: 2019Q1

REPORT INFORMATION
  Report Type: Report from Study
  Country: None (occurrence: ES)
  Receive Date: 20190101
  Receipt Date: 20190114
  Transmission Date: 20190417
  Serious: Yes (Hospitalization)
  Sender: FDA-Public Use
  Company Number: ES-ABBVIE-18S-144-2605940-00

PATIENT
  Age: 81 Year
  Sex: Female

DRUGS (1)
  1. DUODOPA [Suspect]
     Active Substance: CARBIDOPA\LEVODOPA
     Indication: PARKINSON^S DISEASE
     Route: 050
     Dates: start: 20160707

REACTIONS (3)
  - Speech disorder [Unknown]
  - Fatigue [Unknown]
  - Acute pulmonary oedema [Recovering/Resolving]

NARRATIVE: CASE EVENT DATE: 20181224
